FAERS Safety Report 9871212 (Version 3)
Quarter: 2014Q1

REPORT INFORMATION
  Report Type: Report from Study
  Country: US (occurrence: US)
  Receive Date: 20140205
  Receipt Date: 20140311
  Transmission Date: 20141002
  Serious: Yes (Hospitalization)
  Sender: FDA-Public Use
  Company Number: PHEH2014US002093

PATIENT
  Age: 50 Year
  Sex: Female
  Weight: 150 kg

DRUGS (2)
  1. GILENYA [Suspect]
     Indication: MULTIPLE SCLEROSIS
     Dosage: 0.5 MG, QD
     Route: 048
     Dates: start: 20140115
  2. NALTREXONE [Concomitant]
     Indication: MULTIPLE SCLEROSIS
     Dosage: 3 MG, UNK

REACTIONS (5)
  - Multiple sclerosis relapse [Recovering/Resolving]
  - Hemiparesis [Not Recovered/Not Resolved]
  - Abasia [Not Recovered/Not Resolved]
  - Muscular weakness [Recovered/Resolved]
  - Abdominal discomfort [Recovered/Resolved]
